FAERS Safety Report 5970780-2 (Version None)
Quarter: 2008Q4

REPORT INFORMATION
  Report Type: 
  Country: None (occurrence: None)
  Receive Date: 20081126
  Receipt Date: 20081113
  Transmission Date: 20090506
  Serious: No
  Sender: FDA-Public Use
  Company Number: US-ABBOTT-08P-163-0487812-00

PATIENT
  Sex: Female
  Weight: 68.1 kg

DRUGS (3)
  1. SIMCOR [Suspect]
     Indication: BLOOD CHOLESTEROL INCREASED
     Dosage: 500/20 MG
     Route: 048
     Dates: start: 20080701, end: 20081101
  2. SIMCOR [Suspect]
     Dosage: 1000/20MG
     Route: 048
     Dates: start: 20081101
  3. DIOVAN [Concomitant]
     Indication: HYPERTENSION

REACTIONS (3)
  - FLUSHING [None]
  - HOT FLUSH [None]
  - PARAESTHESIA [None]
